FAERS Safety Report 4913587-7 (Version None)
Quarter: 2006Q1

REPORT INFORMATION
  Report Type: 
  Country: None (occurrence: None)
  Receive Date: 20060216
  Receipt Date: 20060210
  Transmission Date: 20060701
  Serious: Yes (Hospitalization)
  Sender: FDA-Public Use
  Company Number: MX-BOEHRINGER INGELHEIM PHARMACEUTICALS, INC.-2006-BP-01586MX

PATIENT
  Age: 49 Year
  Sex: Female
  Weight: 58 kg

DRUGS (1)
  1. SPIRIVA [Suspect]
     Indication: BRONCHIAL DISORDER
     Route: 055
     Dates: start: 20050901

REACTIONS (4)
  - BRONCHITIS [None]
  - HYPERSENSITIVITY [None]
  - PULMONARY FIBROSIS [None]
  - RESPIRATORY FAILURE [None]
